FAERS Safety Report 5404126-5 (Version None)
Quarter: 2007Q3

REPORT INFORMATION
  Report Type: 
  Country: None (occurrence: None)
  Receive Date: 20070731
  Receipt Date: 20070725
  Transmission Date: 20080115
  Serious: Yes (Other)
  Sender: FDA-Public Use
  Company Number: 2007-GWUS-0361

PATIENT
  Age: 49 Year
  Sex: Female
  Weight: 61.6892 kg

DRUGS (1)
  1. ALDARA [Suspect]
     Indication: BASAL CELL CARCINOMA
     Dosage: APPLICATION - 5 TIMES WEEKLY - TOPICAL
     Route: 061
     Dates: start: 20070403, end: 20070501

REACTIONS (6)
  - APPLICATION SITE BLEEDING [None]
  - BASEDOW'S DISEASE [None]
  - GOITRE [None]
  - INFLUENZA LIKE ILLNESS [None]
  - PHARYNGEAL OEDEMA [None]
  - SCAB [None]
